FAERS Safety Report 9700413 (Version 1)
Quarter: 2013Q4

REPORT INFORMATION
  Report Type: Spontaneous
  Country: US (occurrence: None)
  Receive Date: 20131120
  Receipt Date: 20131120
  Transmission Date: 20140711
  Serious: Yes (Other)
  Sender: FDA-Public Use
  Company Number: None

PATIENT
  Age: 74 Year
  Sex: Female
  Weight: 63.6 kg

DRUGS (1)
  1. ERYTHOMYCIN OPHALMOLIC OINTMENT [Suspect]
     Dosage: ERYTHOMYCIN PUT IN EYES AT NIGHT
     Dates: start: 201309, end: 20131030

REACTIONS (5)
  - Back pain [None]
  - Chills [None]
  - Influenza like illness [None]
  - Kidney infection [None]
  - Cystitis [None]
